FAERS Safety Report 4910212-6 (Version None)
Quarter: 2006Q1

REPORT INFORMATION
  Report Type: 
  Country: None (occurrence: None)
  Receive Date: 20060209
  Receipt Date: 20060127
  Transmission Date: 20060701
  Serious: Yes (Hospitalization, Disabling, Other)
  Sender: FDA-Public Use
  Company Number: 2005160705

PATIENT
  Age: 60 Year
  Sex: Male
  Weight: 90.7194 kg

DRUGS (11)
  1. LYRICA [Suspect]
     Indication: MUSCLE SPASMS
     Dosage: 300 MG (150 MG, 2 IN 1 D),
     Dates: start: 20050101
  2. LYRICA [Suspect]
     Indication: MYELITIS
     Dosage: 300 MG (150 MG, 2 IN 1 D),
     Dates: start: 20050101
  3. LYRICA [Suspect]
     Indication: NEUROPATHY
     Dosage: 300 MG (150 MG, 2 IN 1 D),
     Dates: start: 20050101
  4. VALIUM [Concomitant]
  5. BACLOFEN [Concomitant]
  6. METHADONE HCL [Concomitant]
  7. MORPHINE [Concomitant]
  8. DILAUDID [Concomitant]
  9. OPIOIDS (OPIOIDS) [Concomitant]
  10. LIPITOR [Concomitant]
  11. ZESTRIL [Concomitant]

REACTIONS (6)
  - CONDITION AGGRAVATED [None]
  - CONSTIPATION [None]
  - DIPLEGIA [None]
  - DRUG INEFFECTIVE [None]
  - JOINT SWELLING [None]
  - PAIN [None]
